FAERS Safety Report 7912073-X (Version None)
Quarter: 2011Q4

REPORT INFORMATION
  Report Type: 
  Country: None (occurrence: None)
  Receive Date: 20111114
  Receipt Date: 20111103
  Transmission Date: 20120403
  Serious: Yes (Other)
  Sender: FDA-Public Use
  Company Number: AU-GENZYME-POMP-1001859

PATIENT
  Weight: 2.065 kg

DRUGS (1)
  1. MYOZYME [Suspect]
     Indication: GLYCOGEN STORAGE DISEASE TYPE II
     Route: 015

REACTIONS (5)
  - FOETAL HEART RATE DECELERATION [None]
  - PREMATURE BABY [None]
  - LOW BIRTH WEIGHT BABY [None]
  - RESPIRATORY DISTRESS [None]
  - HYPOTHERMIA [None]
